FAERS Safety Report 15594319 (Version 1)
Quarter: 2018Q4

REPORT INFORMATION
  Report Type: Spontaneous
  Country: US (occurrence: US)
  Receive Date: 20181106
  Receipt Date: 20181106
  Transmission Date: 20190205
  Serious: No
  Sender: FDA-Public Use
  Company Number: US-PFIZER INC-2018452639

PATIENT
  Sex: Female

DRUGS (1)
  1. PREMARIN [Suspect]
     Active Substance: ESTROGENS, CONJUGATED
     Dosage: 0.3 MG, 1X/DAY (ONCE DAILY FOR TWO WEEKS)

REACTIONS (3)
  - Acne [Recovered/Resolved]
  - Condition aggravated [Recovered/Resolved]
  - Hot flush [Recovered/Resolved]
